FAERS Safety Report 25868374 (Version 3)
Quarter: 2025Q4

REPORT INFORMATION
  Report Type: Report from Study
  Country: CO (occurrence: CO)
  Receive Date: 20251001
  Receipt Date: 20251113
  Transmission Date: 20260117
  Serious: Yes (Other)
  Sender: MIRUM PHARMACEUTICALS
  Company Number: CO-MIRUM PHARMACEUTICALS, INC.-CO-MIR-25-00213

PATIENT

DRUGS (3)
  1. LIVMARLI [Suspect]
     Active Substance: MARALIXIBAT CHLORIDE
     Indication: Alagille syndrome
     Dosage: 0.2 MILLILITER, QD (DOSE INCREASED)
     Route: 048
     Dates: start: 20250709, end: 20251025
  2. LIVMARLI [Suspect]
     Active Substance: MARALIXIBAT CHLORIDE
     Dosage: 0.15 MILLILITER, QD
     Route: 048
     Dates: start: 20250410, end: 20250708
  3. LIVMARLI [Suspect]
     Active Substance: MARALIXIBAT CHLORIDE
     Dosage: 0.7 MILLILITER, QD
     Route: 048
     Dates: start: 20250402, end: 20250409

REACTIONS (9)
  - Blood bilirubin increased [Not Recovered/Not Resolved]
  - Bilirubin conjugated increased [Not Recovered/Not Resolved]
  - Blood alkaline phosphatase increased [Not Recovered/Not Resolved]
  - Transaminases increased [Not Recovered/Not Resolved]
  - Bile acids increased [Not Recovered/Not Resolved]
  - Influenza [Recovered/Resolved]
  - Pruritus [Not Recovered/Not Resolved]
  - Insurance issue [Unknown]
  - Therapy interrupted [Not Recovered/Not Resolved]

NARRATIVE: CASE EVENT DATE: 20250404
